FAERS Safety Report 19286151 (Version 2)
Quarter: 2022Q2

REPORT INFORMATION
  Report Type: Spontaneous
  Country: CA (occurrence: CA)
  Receive Date: 20210521
  Receipt Date: 20220610
  Transmission Date: 20220721
  Serious: Yes (Hospitalization, Other)
  Sender: FDA-Public Use
  Company Number: CA-SAMSUNG BIOEPIS-SB-2021-11840

PATIENT
  Age: 75 Year
  Sex: Female
  Weight: 56 kg

DRUGS (3)
  1. INFLIXIMAB [Suspect]
     Active Substance: INFLIXIMAB
     Indication: Crohn^s disease
     Route: 042
  2. LOPERAMIDE HYDROCHLORIDE [Concomitant]
     Active Substance: LOPERAMIDE HYDROCHLORIDE
     Indication: Product used for unknown indication
     Dosage: UNKNOWN
     Route: 065
  3. BUTYLSCOPOLAMINE BROMIDE [Concomitant]
     Active Substance: BUTYLSCOPOLAMINE BROMIDE
     Indication: Product used for unknown indication
     Dosage: UNKNOWN
     Route: 065

REACTIONS (10)
  - Condition aggravated [Recovered/Resolved]
  - Flatulence [Recovered/Resolved]
  - Haemolysis [Recovered/Resolved]
  - Post procedural diarrhoea [Recovered/Resolved]
  - Weight decreased [Recovered/Resolved]
  - Blood potassium increased [Recovered/Resolved]
  - Blood pressure diastolic decreased [Recovered/Resolved]
  - Inappropriate schedule of product administration [Recovered/Resolved]
  - Intentional product use issue [Recovered/Resolved]
  - Off label use [Recovered/Resolved]
